FAERS Safety Report 17948313 (Version 1)
Quarter: 2020Q2

REPORT INFORMATION
  Report Type: Spontaneous
  Country: DE (occurrence: DE)
  Receive Date: 20200626
  Receipt Date: 20200626
  Transmission Date: 20200714
  Serious: Yes (Hospitalization, Other)
  Sender: FDA-Public Use
  Company Number: DE-PFIZER INC-2020242815

PATIENT
  Age: 71 Year
  Sex: Male
  Weight: 85 kg

DRUGS (3)
  1. ZOPICLONE [Suspect]
     Active Substance: ZOPICLONE
     Dosage: 142.5 MG
     Route: 048
     Dates: start: 20200606
  2. CANDECOR [Suspect]
     Active Substance: CANDESARTAN CILEXETIL
     Dosage: 12 DF
     Route: 048
     Dates: start: 20200606
  3. AMLODIPINE BESILATE [Suspect]
     Active Substance: AMLODIPINE BESYLATE
     Dosage: 110 MG
     Route: 048
     Dates: start: 20200606

REACTIONS (3)
  - Suicidal ideation [Unknown]
  - Mydriasis [Unknown]
  - Intentional overdose [Unknown]

NARRATIVE: CASE EVENT DATE: 20200606
